FAERS Safety Report 14002444 (Version 3)
Quarter: 2020Q2

REPORT INFORMATION
  Report Type: Spontaneous
  Country: US (occurrence: US)
  Receive Date: 20170922
  Receipt Date: 20200529
  Transmission Date: 20200713
  Serious: Yes (Death, Other)
  Sender: FDA-Public Use
  Company Number: US-JNJFOC-20170820586

PATIENT
  Age: 60 Year
  Sex: Male

DRUGS (3)
  1. XARELTO [Suspect]
     Active Substance: RIVAROXABAN
     Indication: ATRIAL FIBRILLATION
     Route: 048
     Dates: start: 20130614, end: 20130913
  2. XARELTO [Suspect]
     Active Substance: RIVAROXABAN
     Indication: THROMBOSIS PROPHYLAXIS
  3. XARELTO [Suspect]
     Active Substance: RIVAROXABAN
     Indication: CEREBROVASCULAR ACCIDENT PROPHYLAXIS
     Route: 048
     Dates: start: 20130913, end: 20170430

REACTIONS (8)
  - Sepsis [Fatal]
  - Hypoglycaemia [Fatal]
  - Off label use [Unknown]
  - Product prescribing error [Unknown]
  - Acute kidney injury [Unknown]
  - Pneumonia [Fatal]
  - Gastrointestinal haemorrhage [Unknown]
  - Epistaxis [Recovering/Resolving]

NARRATIVE: CASE EVENT DATE: 20130614
